FAERS Safety Report 6789082-X (Version None)
Quarter: 2010Q2

REPORT INFORMATION
  Report Type: 
  Country: None (occurrence: None)
  Receive Date: 20100623
  Receipt Date: 20080922
  Transmission Date: 20101027
  Serious: No
  Sender: FDA-Public Use
  Company Number: US-PFIZER INC-2008019311

PATIENT
  Sex: Female
  Weight: 63.636 kg

DRUGS (6)
  1. AROMASIN [Suspect]
     Indication: BREAST CANCER
     Route: 048
     Dates: start: 20070101, end: 20080401
  2. WELLBUTRIN [Concomitant]
     Indication: DEPRESSION
  3. LEXAPRO [Concomitant]
     Indication: DEPRESSION
  4. CLONAZEPAM [Concomitant]
     Indication: ANXIETY
  5. OXYCODONE HCL [Concomitant]
  6. FOSAMAX [Concomitant]
     Indication: OSTEOPOROSIS

REACTIONS (6)
  - ALOPECIA [None]
  - ARTHRALGIA [None]
  - CONDITION AGGRAVATED [None]
  - HAIR GROWTH ABNORMAL [None]
  - LYMPHOEDEMA [None]
  - WEIGHT INCREASED [None]
